FAERS Safety Report 14073260 (Version 1)
Quarter: 2017Q4

REPORT INFORMATION
  Report Type: Spontaneous
  Country: US (occurrence: US)
  Receive Date: 20171010
  Receipt Date: 20171010
  Transmission Date: 20180321
  Serious: No
  Sender: FDA-Public Use
  Company Number: US-JNJFOC-20170806909

PATIENT
  Age: 64 Year
  Sex: Female
  Weight: 86.18 kg

DRUGS (37)
  1. PREDNISONE. [Concomitant]
     Active Substance: PREDNISONE
     Indication: MUSCULOSKELETAL STIFFNESS
     Route: 048
     Dates: start: 20170804
  2. BENADRYL [Suspect]
     Active Substance: DIPHENHYDRAMINE HYDROCHLORIDE
     Indication: DIZZINESS
     Route: 048
     Dates: start: 20170804, end: 20170805
  3. TYLENOL [Suspect]
     Active Substance: ACETAMINOPHEN
     Indication: FEELING ABNORMAL
     Route: 048
     Dates: start: 20170804, end: 20170805
  4. TYLENOL [Suspect]
     Active Substance: ACETAMINOPHEN
     Indication: INFUSION RELATED REACTION
     Route: 048
     Dates: start: 20170804, end: 20170805
  5. PREDNISONE. [Concomitant]
     Active Substance: PREDNISONE
     Indication: PRURITUS
     Route: 048
     Dates: start: 20170804
  6. BENADRYL [Suspect]
     Active Substance: DIPHENHYDRAMINE HYDROCHLORIDE
     Indication: INFUSION RELATED REACTION
     Route: 048
     Dates: start: 20170804, end: 20170805
  7. TYLENOL [Suspect]
     Active Substance: ACETAMINOPHEN
     Indication: DIZZINESS
     Route: 048
     Dates: start: 20170804, end: 20170805
  8. TYLENOL [Suspect]
     Active Substance: ACETAMINOPHEN
     Indication: PRURITUS
     Route: 048
     Dates: start: 20170804, end: 20170805
  9. ESTRACE [Concomitant]
     Active Substance: ESTRADIOL
     Indication: PRODUCT USED FOR UNKNOWN INDICATION
     Dosage: TWICE A WEEK AS NEEDED
     Route: 067
  10. LEVOTHYROXINE. [Concomitant]
     Active Substance: LEVOTHYROXINE
     Indication: PRODUCT USED FOR UNKNOWN INDICATION
     Route: 065
  11. FLONASE [Concomitant]
     Active Substance: FLUTICASONE PROPIONATE
     Indication: PRODUCT USED FOR UNKNOWN INDICATION
     Route: 065
  12. PREDNISONE. [Concomitant]
     Active Substance: PREDNISONE
     Indication: SWOLLEN TONGUE
     Route: 048
     Dates: start: 20170804
  13. PREDNISONE. [Concomitant]
     Active Substance: PREDNISONE
     Indication: THIRST
     Route: 048
     Dates: start: 20170804
  14. PREDNISONE. [Concomitant]
     Active Substance: PREDNISONE
     Indication: INFUSION RELATED REACTION
     Route: 048
     Dates: start: 20170804
  15. BENADRYL [Suspect]
     Active Substance: DIPHENHYDRAMINE HYDROCHLORIDE
     Indication: DYSPHAGIA
     Route: 048
     Dates: start: 20170804, end: 20170805
  16. TYLENOL [Suspect]
     Active Substance: ACETAMINOPHEN
     Indication: MUSCULOSKELETAL STIFFNESS
     Route: 048
     Dates: start: 20170804, end: 20170805
  17. HYDROCHLOROTHIAZIDE. [Concomitant]
     Active Substance: HYDROCHLOROTHIAZIDE
     Indication: HYPERTENSION
     Route: 065
  18. BENTYL [Concomitant]
     Active Substance: DICYCLOMINE HYDROCHLORIDE
     Indication: PRODUCT USED FOR UNKNOWN INDICATION
     Route: 065
  19. PREDNISONE. [Concomitant]
     Active Substance: PREDNISONE
     Indication: DIZZINESS
     Route: 048
     Dates: start: 20170804
  20. BENADRYL [Suspect]
     Active Substance: DIPHENHYDRAMINE HYDROCHLORIDE
     Indication: FEELING ABNORMAL
     Route: 048
     Dates: start: 20170804, end: 20170805
  21. BENADRYL [Suspect]
     Active Substance: DIPHENHYDRAMINE HYDROCHLORIDE
     Indication: THIRST
     Route: 048
     Dates: start: 20170804, end: 20170805
  22. BENADRYL [Suspect]
     Active Substance: DIPHENHYDRAMINE HYDROCHLORIDE
     Indication: PARAESTHESIA
     Route: 048
     Dates: start: 20170804, end: 20170805
  23. BENADRYL [Suspect]
     Active Substance: DIPHENHYDRAMINE HYDROCHLORIDE
     Indication: MUSCULOSKELETAL STIFFNESS
     Route: 048
     Dates: start: 20170804, end: 20170805
  24. LORAZEPAM. [Concomitant]
     Active Substance: LORAZEPAM
     Indication: PRODUCT USED FOR UNKNOWN INDICATION
     Dosage: AT BEDTIME
     Route: 065
  25. TYLENOL [Suspect]
     Active Substance: ACETAMINOPHEN
     Indication: DYSPHAGIA
     Route: 048
     Dates: start: 20170804, end: 20170805
  26. TYLENOL [Suspect]
     Active Substance: ACETAMINOPHEN
     Indication: THIRST
     Route: 048
     Dates: start: 20170804, end: 20170805
  27. ESCITALOPRAM [Concomitant]
     Active Substance: ESCITALOPRAM OXALATE
     Indication: PRODUCT USED FOR UNKNOWN INDICATION
     Route: 065
  28. PREDNISONE. [Concomitant]
     Active Substance: PREDNISONE
     Indication: PARAESTHESIA
     Route: 048
     Dates: start: 20170804
  29. BENADRYL [Suspect]
     Active Substance: DIPHENHYDRAMINE HYDROCHLORIDE
     Indication: PRURITUS
     Route: 048
     Dates: start: 20170804, end: 20170805
  30. STELARA [Concomitant]
     Active Substance: USTEKINUMAB
     Indication: CROHN^S DISEASE
     Route: 042
     Dates: start: 20170804, end: 20170804
  31. AZATHIOPRINE. [Concomitant]
     Active Substance: AZATHIOPRINE
     Indication: CROHN^S DISEASE
     Route: 065
  32. PANTOPRAZOLE [Concomitant]
     Active Substance: PANTOPRAZOLE
     Indication: PRODUCT USED FOR UNKNOWN INDICATION
     Route: 065
  33. PREDNISONE. [Concomitant]
     Active Substance: PREDNISONE
     Indication: FEELING ABNORMAL
     Route: 048
     Dates: start: 20170804
  34. PREDNISONE. [Concomitant]
     Active Substance: PREDNISONE
     Indication: DYSPHAGIA
     Route: 048
     Dates: start: 20170804
  35. BENADRYL [Suspect]
     Active Substance: DIPHENHYDRAMINE HYDROCHLORIDE
     Indication: SWOLLEN TONGUE
     Route: 048
     Dates: start: 20170804, end: 20170805
  36. TYLENOL [Suspect]
     Active Substance: ACETAMINOPHEN
     Indication: SWOLLEN TONGUE
     Route: 048
     Dates: start: 20170804, end: 20170805
  37. TYLENOL [Suspect]
     Active Substance: ACETAMINOPHEN
     Indication: PARAESTHESIA
     Route: 048
     Dates: start: 20170804, end: 20170805

REACTIONS (4)
  - Product use in unapproved indication [Unknown]
  - Off label use [Unknown]
  - Therapeutic response unexpected [Unknown]
  - Drug ineffective for unapproved indication [Unknown]

NARRATIVE: CASE EVENT DATE: 20170804
